FAERS Safety Report 24680087 (Version 1)
Quarter: 2024Q4

REPORT INFORMATION
  Report Type: Spontaneous
  Country: FR (occurrence: FR)
  Receive Date: 20241129
  Receipt Date: 20241129
  Transmission Date: 20250114
  Serious: Yes (Other)
  Sender: AMGEN
  Company Number: FR-AMGEN-FRASP2024232981

PATIENT

DRUGS (1)
  1. ADALIMUMAB [Suspect]
     Active Substance: ADALIMUMAB
     Indication: Uveitis
     Dosage: UNK
     Route: 065

REACTIONS (5)
  - Macular oedema [Unknown]
  - Cataract [Unknown]
  - Uveitis [Unknown]
  - Eye inflammation [Unknown]
  - Vasculitis [Unknown]
